FAERS Safety Report 9157779 (Version 2)
Quarter: 2013Q1

REPORT INFORMATION
  Report Type: Spontaneous
  Country: US (occurrence: US)
  Receive Date: 20130312
  Receipt Date: 20130326
  Transmission Date: 20140127
  Serious: Yes (Hospitalization)
  Sender: FDA-Public Use
  Company Number: US-GILEAD-2013-0071346

PATIENT
  Age: 60 Year
  Sex: Male

DRUGS (22)
  1. LETAIRIS [Suspect]
     Indication: PULMONARY HYPERTENSION
     Dosage: 5 MG, QD
     Dates: start: 20110328
  2. SILDENAFIL [Concomitant]
  3. TYVASO [Concomitant]
  4. SINGULAIR [Concomitant]
  5. THEOPHYLLINE [Concomitant]
  6. VITAMIN B COMPLEX [Concomitant]
  7. VITAMIN D /00107901/ [Concomitant]
  8. ZOLPIDEM TARTRATE [Concomitant]
  9. ACYCLOVIR                          /00587301/ [Concomitant]
  10. ASPIRIN [Concomitant]
  11. ATORVASTATIN [Concomitant]
  12. CITRACAL                           /00751520/ [Concomitant]
  13. DILTIAZEM [Concomitant]
  14. FOLIC ACID [Concomitant]
  15. FUROSEMIDE [Concomitant]
  16. KLOR-CON [Concomitant]
  17. LEVOTHYROXINE [Concomitant]
  18. LEXAPRO [Concomitant]
  19. OXYGEN [Concomitant]
  20. PROBENECID [Concomitant]
  21. REVATIO [Concomitant]
  22. REVLIMID [Concomitant]

REACTIONS (1)
  - Syncope [Recovered/Resolved]
